FAERS Safety Report 15787819 (Version 2)
Quarter: 2019Q1

REPORT INFORMATION
  Report Type: Spontaneous
  Country: US (occurrence: US)
  Receive Date: 20190103
  Receipt Date: 20190328
  Transmission Date: 20190417
  Serious: Yes (Hospitalization)
  Sender: FDA-Public Use
  Company Number: US-DSJP-DSU-2017-140485

PATIENT

DRUGS (3)
  1. BENICAR [Suspect]
     Active Substance: OLMESARTAN MEDOXOMIL
     Indication: PRODUCT USED FOR UNKNOWN INDICATION
     Dosage: 40 MG, QD
     Route: 048
     Dates: start: 20061001, end: 20081215
  2. BENICAR HCT [Suspect]
     Active Substance: HYDROCHLOROTHIAZIDE\OLMESARTAN MEDOXOMIL
     Indication: PRODUCT USED FOR UNKNOWN INDICATION
     Dosage: 40/25 MG, UNK
     Route: 048
     Dates: start: 20061001, end: 20081215
  3. BENICAR HCT [Suspect]
     Active Substance: HYDROCHLOROTHIAZIDE\OLMESARTAN MEDOXOMIL
     Dosage: 40/12.5 MG, QD
     Route: 048
     Dates: start: 20061001

REACTIONS (5)
  - Hiatus hernia [Unknown]
  - Sprue-like enteropathy [Recovering/Resolving]
  - Gastrointestinal angiodysplasia [Unknown]
  - Large intestine polyp [Recovered/Resolved]
  - Diverticulum intestinal [Not Recovered/Not Resolved]

NARRATIVE: CASE EVENT DATE: 20070301
